FAERS Safety Report 4559971-5 (Version None)
Quarter: 2005Q1

REPORT INFORMATION
  Report Type: 
  Country: None (occurrence: None)
  Receive Date: 20050120
  Receipt Date: 20050120
  Transmission Date: 20050727
  Serious: Yes (Other)
  Sender: FDA-Public Use
  Company Number: None

PATIENT
  Age: 29 Year
  Sex: Male

DRUGS (1)
  1. ZIPRASIDONE [Suspect]
     Indication: PSYCHOTIC DISORDER
     Dosage: 80 MG PO DAILY [ONE DOSE]
     Route: 048

REACTIONS (2)
  - HYPERHIDROSIS [None]
  - HYPOTENSION [None]
